FAERS Safety Report 15009695 (Version 2)
Quarter: 2018Q3

REPORT INFORMATION
  Report Type: Spontaneous
  Country: US (occurrence: US)
  Receive Date: 20180614
  Receipt Date: 20180717
  Transmission Date: 20181010
  Serious: Yes (Death, Life-Threatening, Hospitalization)
  Sender: FDA-Public Use
  Company Number: US-VIVIMED-2018SP004493

PATIENT

DRUGS (7)
  1. RISPERIDONE. [Concomitant]
     Active Substance: RISPERIDONE
     Indication: HYPERTENSION
  2. TRAZODONE [Concomitant]
     Active Substance: TRAZODONE HYDROCHLORIDE
     Indication: DEPRESSION
     Dosage: UNK
     Route: 065
  3. TRAZODONE [Concomitant]
     Active Substance: TRAZODONE HYDROCHLORIDE
     Indication: HYPERTENSION
  4. AMLODIPINE [Suspect]
     Active Substance: AMLODIPINE BESYLATE
     Indication: PRODUCT USED FOR UNKNOWN INDICATION
     Dosage: 800 MG, (80 TABLETS)
     Route: 048
  5. RISPERIDONE. [Concomitant]
     Active Substance: RISPERIDONE
     Indication: DEPRESSION
     Dosage: UNK
     Route: 065
  6. DIVALPROEX [Concomitant]
     Active Substance: DIVALPROEX SODIUM
     Indication: DEPRESSION
     Dosage: UNK
     Route: 065
  7. DIVALPROEX [Concomitant]
     Active Substance: DIVALPROEX SODIUM
     Indication: HYPERTENSION

REACTIONS (12)
  - Suicide attempt [Unknown]
  - Brain injury [Unknown]
  - Hyperhidrosis [Unknown]
  - Hypotension [Unknown]
  - Acute kidney injury [Unknown]
  - Pulseless electrical activity [Unknown]
  - Overdose [Unknown]
  - Mental status changes [Unknown]
  - Cardiac arrest [Unknown]
  - Pupil fixed [Unknown]
  - Brain death [Fatal]
  - Bradycardia [Unknown]
